FAERS Safety Report 8802815 (Version 6)
Quarter: 2013Q4

REPORT INFORMATION
  Report Type: Spontaneous
  Country: US (occurrence: US)
  Receive Date: 20120921
  Receipt Date: 20131218
  Transmission Date: 20140711
  Serious: Yes (Hospitalization, Disabling, Other)
  Sender: FDA-Public Use
  Company Number: US-009507513-1209USA004331

PATIENT
  Sex: Female
  Weight: 70.75 kg

DRUGS (5)
  1. FOSAMAX [Suspect]
     Indication: OSTEOPENIA
     Dosage: UNK
     Route: 048
     Dates: start: 2003, end: 2010
  2. FOSAMAX PLUS D [Suspect]
     Indication: OSTEOPENIA
     Dosage: UNK
     Route: 048
     Dates: start: 2003, end: 2010
  3. FOSAMAX [Suspect]
     Indication: OSTEOPENIA
     Dosage: UNK
     Route: 048
     Dates: start: 2003, end: 2010
  4. ACTONEL [Concomitant]
     Indication: OSTEOPENIA
     Dosage: 35 MG, UNK
     Dates: start: 200408, end: 200702
  5. BONIVA [Concomitant]
     Indication: OSTEOPENIA
     Dosage: 150 MG, UNK
     Dates: start: 200703, end: 201007

REACTIONS (36)
  - Intramedullary rod insertion [Recovered/Resolved]
  - Hypoacusis [Unknown]
  - Laryngospasm [Unknown]
  - Intramedullary rod insertion [Recovered/Resolved]
  - Femur fracture [Recovered/Resolved]
  - Femur fracture [Recovered/Resolved]
  - Depression [Not Recovered/Not Resolved]
  - Anxiety [Not Recovered/Not Resolved]
  - Fear [Not Recovered/Not Resolved]
  - Hypercholesterolaemia [Unknown]
  - Temporomandibular joint syndrome [Unknown]
  - Atrial fibrillation [Unknown]
  - Fall [Unknown]
  - White blood cell count abnormal [Unknown]
  - Osteoporosis [Unknown]
  - Hypotension [Unknown]
  - Nasal congestion [Unknown]
  - Appendicectomy [Unknown]
  - Anaemia postoperative [Unknown]
  - Hypertension [Unknown]
  - Oropharyngeal pain [Unknown]
  - Panic attack [Unknown]
  - Hypertension [Unknown]
  - Tooth extraction [Unknown]
  - Gingival disorder [Unknown]
  - Gingival operation [Unknown]
  - Periodontal operation [Unknown]
  - Oral surgery [Unknown]
  - Endodontic procedure [Unknown]
  - Oral surgery [Unknown]
  - Apicectomy [Unknown]
  - Pain in extremity [Unknown]
  - Abdominal pain upper [Unknown]
  - Abdominal pain upper [Unknown]
  - Gastrooesophageal reflux disease [Unknown]
  - Dysphagia [Unknown]
